FAERS Safety Report 6685081-7 (Version None)
Quarter: 2010Q2

REPORT INFORMATION
  Report Type: 
  Country: None (occurrence: None)
  Receive Date: 20100416
  Receipt Date: 20100408
  Transmission Date: 20101027
  Serious: Yes (Other)
  Sender: FDA-Public Use
  Company Number: B0644894A

PATIENT
  Age: 60 Year
  Sex: Male

DRUGS (7)
  1. LAMICTAL [Suspect]
     Indication: DRUG USE FOR UNKNOWN INDICATION
     Dosage: 200MG PER DAY
     Route: 048
     Dates: start: 20100220
  2. IBRUPROFEN [Concomitant]
     Route: 048
  3. PROSTAURGENINE [Concomitant]
     Route: 048
  4. AMARYL [Concomitant]
     Dosage: 1MG PER DAY
     Route: 048
  5. AZATHIOPRINE [Concomitant]
     Dosage: 150MG PER DAY
     Route: 048
  6. ALENDRONATE SODIUM [Concomitant]
     Dosage: 70MG WEEKLY
     Route: 048
  7. PREDNISONE TAB [Concomitant]
     Indication: MYASTHENIA GRAVIS
     Dosage: 25MG PER DAY
     Route: 048

REACTIONS (1)
  - MANIA [None]
